FAERS Safety Report 21157143 (Version 1)
Quarter: 2022Q3

REPORT INFORMATION
  Report Type: Spontaneous
  Country: US (occurrence: None)
  Receive Date: 20220730
  Receipt Date: 20220730
  Transmission Date: 20221027
  Serious: Yes (Disabling)
  Sender: FDA-Public Use
  Company Number: None

PATIENT
  Age: 28 Year
  Sex: Female
  Weight: 69.75 kg

DRUGS (5)
  1. DOTAREM [Suspect]
     Active Substance: GADOTERATE MEGLUMINE
     Indication: Contrast media reaction
     Dates: start: 20220630, end: 20220630
  2. LIOTHYRONINE [Concomitant]
     Active Substance: LIOTHYRONINE
  3. SYNTHROID [Concomitant]
     Active Substance: LEVOTHYROXINE SODIUM
  4. VITAMIN B12 [Concomitant]
     Active Substance: CYANOCOBALAMIN
  5. PYRIDOXINE HYDROCHLORIDE [Concomitant]
     Active Substance: PYRIDOXINE HYDROCHLORIDE

REACTIONS (10)
  - Muscular weakness [None]
  - Fatigue [None]
  - Burning sensation [None]
  - Paraesthesia [None]
  - Pain [None]
  - Eye irritation [None]
  - Feeling abnormal [None]
  - Paraesthesia [None]
  - Vision blurred [None]
  - Vitreous floaters [None]

NARRATIVE: CASE EVENT DATE: 20220630
